FAERS Safety Report 5104435-3 (Version None)
Quarter: 2006Q3

REPORT INFORMATION
  Report Type: 
  Country: None (occurrence: None)
  Receive Date: 20060914
  Receipt Date: 20060908
  Transmission Date: 20061208
  Serious: Yes (Hospitalization)
  Sender: FDA-Public Use
  Company Number: CA-BAYER-200614024GDS

PATIENT
  Age: 67 Year
  Sex: Male
  Weight: 60 kg

DRUGS (32)
  1. SORAFENIB OR PLACEBO [Suspect]
     Indication: HEPATIC NEOPLASM MALIGNANT
     Route: 048
  2. METFORMIN HYDROCHLORIDE [Concomitant]
     Indication: DIABETES MELLITUS
     Route: 065
     Dates: start: 20040601
  3. GLYBURIDE [Concomitant]
     Indication: DIABETES MELLITUS
     Route: 065
     Dates: start: 20020601
  4. LOSEC [Concomitant]
     Indication: RETCHING
     Route: 065
     Dates: start: 20040901
  5. CALCIUM WITH VITAMIN D [Concomitant]
     Indication: VITAMIN SUPPLEMENTATION
     Route: 065
     Dates: start: 19990701
  6. HIGH POTENCY MULTIVITAMIN [Concomitant]
     Indication: VITAMIN SUPPLEMENTATION
     Route: 065
     Dates: start: 19990701
  7. WARFARIN SODIUM [Concomitant]
     Indication: HYPERTENSIVE CARDIOMYOPATHY
     Route: 065
     Dates: start: 20051104, end: 20051124
  8. WARFARIN SODIUM [Concomitant]
     Route: 065
     Dates: start: 20060330, end: 20060505
  9. WARFARIN SODIUM [Concomitant]
     Route: 065
     Dates: start: 20060506, end: 20060824
  10. WARFARIN SODIUM [Concomitant]
     Route: 065
     Dates: start: 20010601, end: 20051103
  11. WARFARIN SODIUM [Concomitant]
     Route: 065
     Dates: start: 20051125, end: 20060330
  12. DIGOXIN [Concomitant]
     Indication: ATRIAL FIBRILLATION
     Route: 065
     Dates: start: 19940701, end: 20060501
  13. DIGOXIN [Concomitant]
     Route: 065
     Dates: start: 20060501
  14. POTASSIUM CHLORIDE [Concomitant]
     Indication: HYPERTENSION
     Route: 065
     Dates: start: 19940701
  15. GEN-METOPROLOL [Concomitant]
     Indication: HYPERTENSION
     Route: 065
     Dates: start: 20051215
  16. GEN-METOPROLOL [Concomitant]
     Route: 065
     Dates: start: 20051110, end: 20051214
  17. GEN-METOPROLOL [Concomitant]
     Route: 065
     Dates: start: 19940701, end: 20051110
  18. NOVO-TRIMEL [Concomitant]
     Indication: PROSTATIC DISORDER
     Route: 065
     Dates: start: 20051215, end: 20051229
  19. DIOVAN [Concomitant]
     Indication: HYPERTENSION
     Route: 065
     Dates: start: 20030701
  20. NORVASC [Concomitant]
     Indication: HYPERTENSION
     Route: 065
     Dates: start: 20040701
  21. HYDRALAZINE HCL [Concomitant]
     Indication: DIURETIC THERAPY
     Route: 065
     Dates: start: 19940701
  22. AMILORIDE [Concomitant]
     Indication: DIURETIC THERAPY
     Route: 065
     Dates: start: 20060531, end: 20060602
  23. AMILORIDE [Concomitant]
     Route: 065
     Dates: start: 20040701
  24. GRAVOL TAB [Concomitant]
     Indication: NAUSEA
     Route: 065
     Dates: start: 20040701
  25. TAMSULOSIN HYDROCHLORIDE [Concomitant]
     Indication: BENIGN PROSTATIC HYPERPLASIA
     Route: 065
     Dates: start: 20050701
  26. ACETAMINOPHEN ES [Concomitant]
     Indication: PAIN
  27. FUROSEMIDE [Concomitant]
     Indication: HYPERTENSION
     Route: 065
     Dates: start: 20060119, end: 20060501
  28. FLAMAZINE 1% [Concomitant]
     Indication: FACE INJURY
     Route: 065
     Dates: start: 20060310
  29. AMILZIDE [Concomitant]
     Indication: DIURETIC THERAPY
     Route: 065
     Dates: start: 20060602
  30. AVEENO BATH [Concomitant]
     Indication: PRURITUS GENERALISED
     Route: 061
     Dates: start: 20060607
  31. IMODIUM [Concomitant]
     Indication: DIARRHOEA
     Route: 065
     Dates: start: 20060713
  32. MORPHINE [Concomitant]
     Indication: PAIN
     Route: 065
     Dates: start: 20060824

REACTIONS (3)
  - ASTHENIA [None]
  - DYSPNOEA [None]
  - MALNUTRITION [None]
